FAERS Safety Report 13245712 (Version 1)
Quarter: 2017Q1

REPORT INFORMATION
  Report Type: Spontaneous
  Country: CA (occurrence: CA)
  Receive Date: 20170217
  Receipt Date: 20170217
  Transmission Date: 20170428
  Serious: Yes (Other)
  Sender: FDA-Public Use
  Company Number: CA-TEVA-739249ACC

PATIENT
  Sex: Female
  Weight: 81.72 kg

DRUGS (1)
  1. TEVA-OLANZAPINE [Suspect]
     Active Substance: OLANZAPINE
     Indication: PRODUCT USED FOR UNKNOWN INDICATION
     Route: 065

REACTIONS (3)
  - Thinking abnormal [Unknown]
  - Suicidal ideation [Unknown]
  - Disturbance in attention [Unknown]
